FAERS Safety Report 8328581-6 (Version None)
Quarter: 2012Q2

REPORT INFORMATION
  Report Type: 
  Country: None (occurrence: None)
  Receive Date: 20120430
  Receipt Date: 20120416
  Transmission Date: 20120825
  Serious: No
  Sender: FDA-Public Use
  Company Number: CRC-12-152

PATIENT
  Age: 50 Year
  Sex: Female

DRUGS (1)
  1. MIDRIN CAPSULES MFR: CARACO [Suspect]

REACTIONS (1)
  - SOMNOLENCE [None]
